FAERS Safety Report 7558073-3 (Version None)
Quarter: 2011Q2

REPORT INFORMATION
  Report Type: 
  Country: None (occurrence: None)
  Receive Date: 20110620
  Receipt Date: 20110614
  Transmission Date: 20111010
  Serious: Yes (Hospitalization, Other)
  Sender: FDA-Public Use
  Company Number: DE-ABBOTT-11P-062-0725465-00

PATIENT
  Sex: Female
  Weight: 86 kg

DRUGS (13)
  1. FOLIC ACID [Concomitant]
     Indication: PRODUCT USED FOR UNKNOWN INDICATION
     Dosage: ON DAY AFTER MTX
  2. GLUCOCORTICOIDS [Concomitant]
     Dates: start: 20101201
  3. PREDNISONE [Concomitant]
     Indication: PRODUCT USED FOR UNKNOWN INDICATION
     Dosage: OPD
  4. IDEOS CHEWABLE TABLETS [Concomitant]
     Indication: OSTEOPOROSIS PROPHYLAXIS
  5. HUMIRA [Suspect]
     Dates: start: 20101222
  6. DIPYRONE TAB [Concomitant]
     Indication: PRODUCT USED FOR UNKNOWN INDICATION
     Dosage: 40 DROPS, TID
  7. GLUCOCORTICOIDS [Concomitant]
     Indication: PRODUCT USED FOR UNKNOWN INDICATION
     Dates: start: 20110301
  8. METHOTREXATE [Concomitant]
     Dates: start: 20101201
  9. GLUCOCORTICOIDS [Concomitant]
     Dates: start: 20101201, end: 20110401
  10. METHOTREXATE [Concomitant]
     Indication: RHEUMATOID ARTHRITIS
     Dosage: 10MG OPW
     Route: 048
     Dates: start: 19990101
  11. ACETAMINOPHEN [Concomitant]
     Indication: PRODUCT USED FOR UNKNOWN INDICATION
  12. HUMIRA [Suspect]
     Indication: RHEUMATOID ARTHRITIS
     Route: 058
     Dates: start: 20050615
  13. DICLOFENAC SODIUM [Concomitant]
     Indication: RHEUMATOID ARTHRITIS
     Dosage: 150MG
     Route: 048
     Dates: end: 20100923

REACTIONS (7)
  - MUSCULOSKELETAL STIFFNESS [None]
  - MOBILITY DECREASED [None]
  - RHEUMATOID ARTHRITIS [None]
  - JOINT SWELLING [None]
  - ENTEROCOLITIS INFECTIOUS [None]
  - DIARRHOEA [None]
  - ARTHRALGIA [None]
